FAERS Safety Report 19746629 (Version 2)
Quarter: 2021Q3

REPORT INFORMATION
  Report Type: Report from Study
  Country: CA (occurrence: CA)
  Receive Date: 20210826
  Receipt Date: 20210915
  Transmission Date: 20211014
  Serious: Yes (Hospitalization, Other)
  Sender: FDA-Public Use
  Company Number: CA-BRISTOL-MYERS SQUIBB COMPANY-BMS-2021-074403

PATIENT
  Age: 14 Year
  Sex: Male
  Weight: 78.5 kg

DRUGS (8)
  1. HYDROVAL [Concomitant]
     Active Substance: HYDROCORTISONE VALERATE
     Indication: RASH
     Dosage: 1 APPLICATION, 2 TIMES DAILY
     Route: 061
     Dates: start: 20210722
  2. SULFAMETHIZOLE;TRIMETHOPRIM [Concomitant]
     Active Substance: SULFAMETHIZOLE\TRIMETHOPRIM
     Indication: PROPHYLAXIS
     Dosage: 160 MG, TWICE DAILY ON FRI, SAT AND SUN
     Route: 065
     Dates: start: 20200116
  3. MOISTURIZER [Concomitant]
     Active Substance: UNSPECIFIED INGREDIENT
     Indication: DRY SKIN
     Dosage: GALAXAL BASED; 1?2 APPLICATIONS DAILY
     Route: 065
     Dates: start: 20210304
  4. LANSOPRAZOLE. [Concomitant]
     Active Substance: LANSOPRAZOLE
     Indication: GASTRITIS
     Dosage: DELAYED RELEASE, 30 MILLIGRAM, ONCE DAILY
     Route: 048
     Dates: start: 20210506
  5. NIVOLUMAB [Suspect]
     Active Substance: NIVOLUMAB
     Indication: NEOPLASM MALIGNANT
     Dosage: 249 MILLIGRAM
     Route: 065
     Dates: start: 20200117, end: 20210712
  6. LEVETIRACETAM. [Concomitant]
     Active Substance: LEVETIRACETAM
     Indication: SEIZURE PROPHYLAXIS
     Dosage: 1500 MILLIGRAM, BID
     Route: 048
     Dates: start: 20200116
  7. HYDROVAL [Concomitant]
     Active Substance: HYDROCORTISONE VALERATE
     Indication: PRURITUS
  8. FAMOTIDINE. [Concomitant]
     Active Substance: FAMOTIDINE
     Indication: GASTRITIS
     Dosage: 40 MILLIGRAM, BID
     Route: 065
     Dates: start: 20210721

REACTIONS (1)
  - Pancreatitis [Not Recovered/Not Resolved]

NARRATIVE: CASE EVENT DATE: 20210726
